FAERS Safety Report 5034186-5 (Version None)
Quarter: 2006Q2

REPORT INFORMATION
  Report Type: 
  Country: None (occurrence: None)
  Receive Date: 20060626
  Receipt Date: 20060621
  Transmission Date: 20061013
  Serious: Yes (Other)
  Sender: FDA-Public Use
  Company Number: US-GLAXOSMITHKLINE-A0609880A

PATIENT
  Age: 64 Year
  Sex: Female

DRUGS (3)
  1. LAMICTAL [Suspect]
     Indication: DRUG USE FOR UNKNOWN INDICATION
     Dosage: 100MG PER DAY
     Route: 048
  2. KLONOPIN [Concomitant]
  3. LEXAPRO [Concomitant]

REACTIONS (11)
  - BLADDER DISORDER [None]
  - BLADDER SPASM [None]
  - CARDIAC DISORDER [None]
  - DIZZINESS [None]
  - HEART RATE INCREASED [None]
  - INSOMNIA [None]
  - MICTURITION URGENCY [None]
  - PALPITATIONS [None]
  - URETHRAL PAIN [None]
  - URINARY HESITATION [None]
  - URINARY INCONTINENCE [None]
